FAERS Safety Report 17335989 (Version 1)
Quarter: 2020Q1

REPORT INFORMATION
  Report Type: Spontaneous
  Country: SE (occurrence: SE)
  Receive Date: 20200128
  Receipt Date: 20200128
  Transmission Date: 20200409
  Serious: Yes (Other)
  Sender: FDA-Public Use
  Company Number: SE-PFIZER INC-2019224748

PATIENT
  Age: 76 Year
  Sex: Female
  Weight: 65 kg

DRUGS (7)
  1. SALAZOPYRIN [Suspect]
     Active Substance: SULFASALAZINE
     Indication: GASTROINTESTINAL INFLAMMATION
     Dosage: 1500 MG, DAILY
     Route: 048
  2. POLYVINYL ALCOHOL [Concomitant]
     Active Substance: POLYVINYL ALCOHOL
     Dosage: UNK
  3. SALAZOPYRIN [Suspect]
     Active Substance: SULFASALAZINE
     Indication: ARTHRALGIA
     Dosage: 1000 MG, 2X/DAY (2 TABLETS IN THE MORNING AND 2 TABLETS IN THE EVENING)
     Route: 048
  4. METHYLCELLULOSE [Concomitant]
     Active Substance: METHYLCELLULOSES
     Dosage: UNK
  5. SALAZOPYRIN [Suspect]
     Active Substance: SULFASALAZINE
     Indication: COLITIS MICROSCOPIC
     Dosage: 1000 MG, 2X/DAY (2 TABLETS IN THE MORNING AND 2 TABLETS IN THE EVENING)
     Route: 048
     Dates: start: 2000
  6. CANDESARTAN. [Concomitant]
     Active Substance: CANDESARTAN
     Dosage: 4 MG, 1X/DAY
  7. BEHEPAN [CYANOCOBALAMIN] [Concomitant]
     Active Substance: CYANOCOBALAMIN
     Dosage: 1 MG, 1X/DAY

REACTIONS (9)
  - Diarrhoea [Recovering/Resolving]
  - Oropharyngeal pain [Not Recovered/Not Resolved]
  - Dyspnoea [Not Recovered/Not Resolved]
  - Dermatitis [Recovered/Resolved with Sequelae]
  - Eczema [Not Recovered/Not Resolved]
  - Rash [Not Recovered/Not Resolved]
  - Disease recurrence [Recovering/Resolving]
  - Dysphagia [Not Recovered/Not Resolved]
  - Atrial fibrillation [Not Recovered/Not Resolved]

NARRATIVE: CASE EVENT DATE: 2019
